FAERS Safety Report 13527556 (Version 1)
Quarter: 2017Q2

REPORT INFORMATION
  Report Type: Spontaneous
  Country: US (occurrence: US)
  Receive Date: 20170509
  Receipt Date: 20170509
  Transmission Date: 20170830
  Serious: Yes (Hospitalization, Other)
  Sender: FDA-Public Use
  Company Number: US-GLAXOSMITHKLINE-US2017GSK067357

PATIENT
  Sex: Female

DRUGS (1)
  1. REQUIP XL [Suspect]
     Active Substance: ROPINIROLE HYDROCHLORIDE
     Indication: RESTLESS LEGS SYNDROME
     Dosage: 2 MG, BID

REACTIONS (6)
  - Nephrectomy [Unknown]
  - Adhesion [Unknown]
  - Renal cancer [Recovered/Resolved]
  - Intestinal resection [Unknown]
  - Scar [Unknown]
  - Surgery [Unknown]
